FAERS Safety Report 17951441 (Version 1)
Quarter: 2020Q2

REPORT INFORMATION
  Report Type: Spontaneous
  Country: GB (occurrence: GB)
  Receive Date: 20200626
  Receipt Date: 20200626
  Transmission Date: 20200714
  Serious: Yes (Other)
  Sender: FDA-Public Use
  Company Number: GB-TEVA-2020-GB-1791691

PATIENT
  Age: 31 Year
  Sex: Female
  Weight: 58 kg

DRUGS (2)
  1. FERROUS FUMARATE [Concomitant]
     Active Substance: FERROUS FUMARATE
     Indication: ANAEMIA
     Dosage: 3 DOSAGE FORMS
     Dates: start: 20200302
  2. IBUPROFEN. [Suspect]
     Active Substance: IBUPROFEN
     Dosage: 200 MG
     Route: 065
     Dates: start: 20200527

REACTIONS (1)
  - Hypersensitivity [Recovered/Resolved]

NARRATIVE: CASE EVENT DATE: 20200527
